FAERS Safety Report 6712571-0 (Version None)
Quarter: 2010Q2

REPORT INFORMATION
  Report Type: 
  Country: None (occurrence: None)
  Receive Date: 20100506
  Receipt Date: 20100426
  Transmission Date: 20101027
  Serious: Yes (Hospitalization, Other)
  Sender: FDA-Public Use
  Company Number: CA-BAYER-201019810NA

PATIENT
  Age: 34 Year
  Sex: Female

DRUGS (2)
  1. MIRENA [Suspect]
     Indication: DRUG USE FOR UNKNOWN INDICATION
     Dosage: FREQUENCY: CONTINUOUS
     Route: 015
     Dates: start: 20090101
  2. MIRENA [Suspect]
     Dosage: FREQUENCY: CONTINUOUS
     Route: 015
     Dates: start: 20040101, end: 20090101

REACTIONS (1)
  - COLITIS ULCERATIVE [None]
